FAERS Safety Report 13962617 (Version 4)
Quarter: 2017Q4

REPORT INFORMATION
  Report Type: Spontaneous
  Country: IT (occurrence: IT)
  Receive Date: 20170913
  Receipt Date: 20171023
  Transmission Date: 20180320
  Serious: Yes (Other)
  Sender: FDA-Public Use
  Company Number: IT-TEVA-806438ACC

PATIENT
  Sex: Male

DRUGS (18)
  1. THIOTEPA. [Suspect]
     Active Substance: THIOTEPA
     Indication: NON-HODGKIN^S LYMPHOMA STAGE IV
  2. FLUDARABINE [Suspect]
     Active Substance: FLUDARABINE PHOSPHATE
     Indication: BONE MARROW CONDITIONING REGIMEN
     Route: 065
  3. CICLOSPORINE [Suspect]
     Active Substance: CYCLOSPORINE
     Indication: PROPHYLAXIS AGAINST GRAFT VERSUS HOST DISEASE
     Route: 065
  4. BUSULFAN. [Suspect]
     Active Substance: BUSULFAN
     Indication: BONE MARROW CONDITIONING REGIMEN
     Route: 065
  5. RITUXIMAB. [Suspect]
     Active Substance: RITUXIMAB
     Indication: NON-HODGKIN^S LYMPHOMA
     Route: 065
     Dates: start: 20111001
  6. BENDAMUSTINE HYDROCHLORIDE. [Suspect]
     Active Substance: BENDAMUSTINE HYDROCHLORIDE
     Indication: NON-HODGKIN^S LYMPHOMA
     Route: 042
     Dates: start: 2010
  7. DEXAMETHASONE. [Suspect]
     Active Substance: DEXAMETHASONE
     Indication: NON-HODGKIN^S LYMPHOMA
     Route: 065
     Dates: start: 20111001
  8. LAMIVUDINE. [Suspect]
     Active Substance: LAMIVUDINE
     Indication: ANTIVIRAL PROPHYLAXIS
     Route: 065
     Dates: start: 2010, end: 201501
  9. FLUDARABINE [Suspect]
     Active Substance: FLUDARABINE PHOSPHATE
     Indication: NON-HODGKIN^S LYMPHOMA STAGE IV
  10. BUSULFAN. [Suspect]
     Active Substance: BUSULFAN
     Indication: NON-HODGKIN^S LYMPHOMA STAGE IV
  11. CISPLATIN. [Suspect]
     Active Substance: CISPLATIN
     Indication: NON-HODGKIN^S LYMPHOMA
     Route: 065
     Dates: start: 20111001
  12. ANTITHYMOCYTE IMMUNOGLOBULIN (RABBIT) [Suspect]
     Active Substance: LAPINE T-LYMPHOCYTE IMMUNE GLOBULIN
     Indication: BONE MARROW CONDITIONING REGIMEN
     Route: 065
  13. TENOFOVIR DISOPROXIL [Suspect]
     Active Substance: TENOFOVIR DISOPROXIL
     Indication: HEPATITIS B REACTIVATION
     Dosage: 245 MILLIGRAM DAILY;
     Route: 048
  14. METHOTREXATE. [Suspect]
     Active Substance: METHOTREXATE
     Indication: PROPHYLAXIS AGAINST GRAFT VERSUS HOST DISEASE
     Route: 065
  15. CYTOSINE ARABINOSIDE [Suspect]
     Active Substance: CYTARABINE
     Indication: NON-HODGKIN^S LYMPHOMA
     Route: 065
     Dates: start: 20111001
  16. THIOTEPA. [Suspect]
     Active Substance: THIOTEPA
     Indication: BONE MARROW CONDITIONING REGIMEN
     Route: 065
  17. ALEMTUZUMAB [Concomitant]
     Active Substance: ALEMTUZUMAB
     Indication: NON-HODGKIN^S LYMPHOMA
     Route: 065
     Dates: start: 2011
  18. OFATUMUMAB [Concomitant]
     Active Substance: OFATUMUMAB
     Indication: NON-HODGKIN^S LYMPHOMA
     Dosage: 9 COURSES
     Route: 065
     Dates: start: 2012

REACTIONS (5)
  - Osteopenia [Recovering/Resolving]
  - Therapeutic response decreased [Recovering/Resolving]
  - Nephropathy toxic [Recovering/Resolving]
  - Glomerular filtration rate decreased [Recovering/Resolving]
  - Hepatitis B reactivation [Recovering/Resolving]

NARRATIVE: CASE EVENT DATE: 201503
